FAERS Safety Report 7269150-9 (Version None)
Quarter: 2011Q1

REPORT INFORMATION
  Report Type: 
  Country: None (occurrence: None)
  Receive Date: 20110202
  Receipt Date: 20110127
  Transmission Date: 20110831
  Serious: Yes (Hospitalization, Other)
  Sender: FDA-Public Use
  Company Number: US-PFIZER INC-2011020765

PATIENT
  Sex: Male

DRUGS (1)
  1. CHANTIX [Suspect]
     Dosage: UNK
     Dates: start: 20070701

REACTIONS (8)
  - PARANOIA [None]
  - ABNORMAL BEHAVIOUR [None]
  - INSOMNIA [None]
  - IRRITABILITY [None]
  - DEPRESSION [None]
  - HALLUCINATION [None]
  - ANXIETY [None]
  - SUICIDE ATTEMPT [None]
